FAERS Safety Report 25319170 (Version 1)
Quarter: 2025Q2

REPORT INFORMATION
  Report Type: Spontaneous
  Country: US (occurrence: EC)
  Receive Date: 20250515
  Receipt Date: 20250515
  Transmission Date: 20250717
  Serious: No
  Sender: MERCK SHARP & DOHME LLC
  Company Number: US-009507513-2285022

PATIENT
  Age: 88 Year
  Sex: Female

DRUGS (1)
  1. VERICIGUAT [Suspect]
     Active Substance: VERICIGUAT
     Route: 048

REACTIONS (3)
  - Product dose omission issue [Unknown]
  - No adverse event [Unknown]
  - Product availability issue [Unknown]
